FAERS Safety Report 16940933 (Version 1)
Quarter: 2019Q4

REPORT INFORMATION
  Report Type: Report from Study
  Country: GB (occurrence: GB)
  Receive Date: 20191021
  Receipt Date: 20191021
  Transmission Date: 20200122
  Serious: Yes (Hospitalization, Other)
  Sender: FDA-Public Use
  Company Number: GB-MYLANLABS-2019M1098135

PATIENT
  Age: 66 Year
  Sex: Female

DRUGS (25)
  1. TRASTUZUMAB. [Suspect]
     Active Substance: TRASTUZUMAB
     Dosage: 472.5 MILLIGRAM, Q3W
     Route: 042
     Dates: start: 20150326, end: 20150710
  2. TRASTUZUMAB. [Suspect]
     Active Substance: TRASTUZUMAB
     Dosage: 170 MILLIGRAM, Q3W
     Route: 042
     Dates: start: 20160114, end: 20160225
  3. PERTUZUMAB. [Suspect]
     Active Substance: PERTUZUMAB
     Dosage: 840 MILLIGRAM,
     Route: 042
     Dates: start: 20150213, end: 20150213
  4. DOCETAXEL. [Suspect]
     Active Substance: DOCETAXEL
     Indication: HER-2 POSITIVE BREAST CANCER
     Dosage: 100 MILLIGRAM, Q3W
     Route: 042
     Dates: start: 20150313, end: 20150415
  5. PARACETAMOL [Concomitant]
     Active Substance: ACETAMINOPHEN
     Dosage: 4 GRAM, QD
     Route: 048
  6. RAMIPRIL. [Concomitant]
     Active Substance: RAMIPRIL
     Dosage: 10 MILLIGRAM
     Route: 048
  7. RANITIDINE. [Concomitant]
     Active Substance: RANITIDINE
     Dosage: 150 MILLIGRAM
     Route: 048
  8. LEVOFLOXACIN. [Concomitant]
     Active Substance: LEVOFLOXACIN
     Indication: INFECTION
     Dosage: 500 MILLIGRAM, Q3W
     Route: 048
     Dates: start: 20150304, end: 20150605
  9. DOCETAXEL. [Suspect]
     Active Substance: DOCETAXEL
     Dosage: 140 MILLIGRAM, Q3W
     Route: 042
     Dates: start: 20150416, end: 20150520
  10. FLUCONAZOLE. [Concomitant]
     Active Substance: FLUCONAZOLE
     Indication: FUNGAL INFECTION
     Dosage: 50 MILLIGRAM, Q3W
     Route: 048
     Dates: start: 20150304, end: 20150603
  11. LOPERAMIDE [Concomitant]
     Active Substance: LOPERAMIDE
     Indication: DIARRHOEA
     Dosage: 2 MILLIGRAM
     Route: 048
  12. CODEIN [Concomitant]
     Active Substance: CODEINE
     Dosage: 64 MILLIGRAM, QD
     Route: 048
  13. SALMETEROL [Concomitant]
     Active Substance: SALMETEROL
     Dosage: 100 MICROGRAM, QD
     Route: 065
  14. TRASTUZUMAB. [Suspect]
     Active Substance: TRASTUZUMAB
     Indication: HER-2 POSITIVE BREAST CANCER
     Dosage: 598 MILLIGRAM,
     Route: 042
     Dates: start: 20150214, end: 20150214
  15. TRASTUZUMAB. [Suspect]
     Active Substance: TRASTUZUMAB
     Dosage: 462 MILLIGRAM, Q3W
     Route: 042
     Dates: start: 20150305, end: 20150305
  16. DENOSUMAB [Concomitant]
     Active Substance: DENOSUMAB
     Dosage: 120 MILLIGRAM, MONTHLY
     Route: 058
     Dates: start: 20150908, end: 20161117
  17. AMOXICILLIN. [Concomitant]
     Active Substance: AMOXICILLIN
     Indication: DYSPNOEA
     Dosage: UNK
  18. TRASTUZUMAB. [Suspect]
     Active Substance: TRASTUZUMAB
     Dosage: 462 MILLIGRAM, Q3W
     Route: 042
     Dates: start: 20150730, end: 20151205
  19. PERTUZUMAB. [Suspect]
     Active Substance: PERTUZUMAB
     Indication: HER-2 POSITIVE BREAST CANCER
     Dosage: 420 MILLIGRAM, Q3W
     Route: 042
     Dates: start: 20150305, end: 20151217
  20. SALBUTAMOL [Concomitant]
     Active Substance: ALBUTEROL
     Dosage: 100 MICROGRAM,FORM: INHALANT
     Route: 013
  21. QVAR [Concomitant]
     Active Substance: BECLOMETHASONE DIPROPIONATE
     Dosage: 400 MICROGRAM, QD
     Route: 065
     Dates: end: 2016
  22. AMOXICILLIN. [Concomitant]
     Active Substance: AMOXICILLIN
     Indication: UPPER RESPIRATORY TRACT INFECTION
     Dosage: UNK
     Route: 048
     Dates: start: 201510
  23. DEXAMETHASON                       /00016001/ [Concomitant]
     Active Substance: DEXAMETHASONE
     Indication: NAUSEA
     Dosage: 8 MILLIGRAM, Q3W
     Route: 048
     Dates: start: 20150304, end: 20150616
  24. ALLOPURINOL. [Concomitant]
     Active Substance: ALLOPURINOL
     Dosage: 100 MILLIGRAM
     Route: 048
  25. PREDNISOLONE. [Concomitant]
     Active Substance: PREDNISOLONE
     Indication: DYSPNOEA
     Dosage: 1500 MILLIGRAM, QW
     Route: 048
     Dates: start: 20150811, end: 20150818

REACTIONS (4)
  - Jaundice [Recovered/Resolved with Sequelae]
  - Gamma-glutamyltransferase increased [Not Recovered/Not Resolved]
  - Alanine aminotransferase increased [Not Recovered/Not Resolved]
  - Blood alkaline phosphatase increased [Not Recovered/Not Resolved]

NARRATIVE: CASE EVENT DATE: 20160223
